FAERS Safety Report 10690210 (Version 1)
Quarter: 2015Q1

REPORT INFORMATION
  Report Type: Spontaneous
  Country: US (occurrence: None)
  Receive Date: 20150102
  Receipt Date: 20150102
  Transmission Date: 20150720
  Serious: Yes (Life-Threatening)
  Sender: FDA-Public Use
  Company Number: None

PATIENT
  Age: 83 Year
  Sex: Male

DRUGS (1)
  1. XTANDI [Suspect]
     Active Substance: ENZALUTAMIDE
     Indication: NEOPLASM MALIGNANT
     Route: 048
     Dates: start: 20140823, end: 20141215

REACTIONS (5)
  - Drug ineffective [None]
  - Metastases to spleen [None]
  - Metastases to liver [None]
  - Metastases to bone [None]
  - Metastases to lung [None]

NARRATIVE: CASE EVENT DATE: 20141215
